FAERS Safety Report 8540980-6 (Version None)
Quarter: 2012Q3

REPORT INFORMATION
  Report Type: 
  Country: None (occurrence: None)
  Receive Date: 20120726
  Receipt Date: 20110812
  Transmission Date: 20120928
  Serious: No
  Sender: FDA-Public Use
  Company Number: US-ASTRAZENECA-2011SE48655

PATIENT
  Sex: Female

DRUGS (13)
  1. SEROQUEL XR [Suspect]
     Route: 048
  2. LISINOPRIL [Concomitant]
     Indication: BLOOD PRESSURE ABNORMAL
  3. LOXAPINE [Concomitant]
     Indication: NERVOUSNESS
  4. SEROQUEL XR [Suspect]
     Route: 048
  5. SEROQUEL XR [Suspect]
     Route: 048
  6. METFORMIN HYDROCHLORIDE [Concomitant]
     Indication: ANXIETY
  7. LOXAPINE [Concomitant]
     Indication: ANXIETY
  8. SEROQUEL XR [Suspect]
     Indication: AMNESIA
     Route: 048
     Dates: start: 20110701
  9. SEROQUEL XR [Suspect]
     Route: 048
  10. METFORMIN HYDROCHLORIDE [Concomitant]
     Indication: DIABETES MELLITUS
  11. LIPITOR [Concomitant]
     Indication: BLOOD CHOLESTEROL ABNORMAL
  12. SEROQUEL XR [Suspect]
     Indication: BIPOLAR DISORDER
     Route: 048
     Dates: start: 20110701
  13. ATENOLOL [Concomitant]
     Indication: BLOOD PRESSURE ABNORMAL

REACTIONS (3)
  - OFF LABEL USE [None]
  - RESTLESSNESS [None]
  - DRUG DOSE OMISSION [None]
